FAERS Safety Report 21725793 (Version 1)
Quarter: 2022Q4

REPORT INFORMATION
  Report Type: Report from Study
  Country: US (occurrence: US)
  Receive Date: 20221214
  Receipt Date: 20221214
  Transmission Date: 20230112
  Serious: Yes (Death, Life-Threatening, Other)
  Sender: FDA-Public Use
  Company Number: US-SUN PHARMACEUTICAL INDUSTRIES LTD-2022R1-368580

PATIENT
  Age: 44 Year
  Sex: Female

DRUGS (2)
  1. CLONIDINE [Suspect]
     Active Substance: CLONIDINE
     Indication: Product used for unknown indication
     Dosage: UNK
     Route: 065
  2. VERAPAMIL [Suspect]
     Active Substance: VERAPAMIL HYDROCHLORIDE
     Indication: Product used for unknown indication
     Dosage: UNK
     Route: 065

REACTIONS (17)
  - Toxicity to various agents [Fatal]
  - Cardiac arrest [Fatal]
  - Acute kidney injury [Unknown]
  - Hypotension [Unknown]
  - Bradycardia [Unknown]
  - Depressed level of consciousness [Unknown]
  - Arrhythmia [Unknown]
  - Electrocardiogram QRS complex prolonged [Unknown]
  - Electrocardiogram QT prolonged [Unknown]
  - Atrioventricular block [Unknown]
  - Myocardial injury [Unknown]
  - Acute lung injury [Unknown]
  - Metabolic acidosis [Unknown]
  - Hepatotoxicity [Unknown]
  - Leukocytosis [Unknown]
  - Myocardial ischaemia [Unknown]
  - Acute respiratory distress syndrome [Unknown]
